FAERS Safety Report 4546718-1 (Version None)
Quarter: 2005Q1

REPORT INFORMATION
  Report Type: 
  Country: None (occurrence: None)
  Receive Date: 20050105
  Receipt Date: 20041228
  Transmission Date: 20050727
  Serious: Yes (Life-Threatening, Hospitalization)
  Sender: FDA-Public Use
  Company Number: ES-2004-037207

PATIENT
  Age: 77 Year
  Sex: Male
  Weight: 82 kg

DRUGS (1)
  1. ULTRAVIST/CLAROGRAF 300 (IOPROMIDE) N/A [Suspect]
     Indication: X-RAY
     Dosage: 75 ML, 1 DOSE, INTRAVENOUS
     Route: 042
     Dates: start: 20041015, end: 20041015

REACTIONS (1)
  - ANAPHYLACTIC SHOCK [None]
